FAERS Safety Report 6298702-8 (Version None)
Quarter: 2009Q3

REPORT INFORMATION
  Report Type: 
  Country: None (occurrence: None)
  Receive Date: 20090806
  Receipt Date: 20070502
  Transmission Date: 20100115
  Serious: Yes (Hospitalization, Disabling, Other)
  Sender: FDA-Public Use
  Company Number: US-ASTRAZENECA-2006UW26378

PATIENT
  Age: 31 Year
  Sex: Female
  Weight: 111.6 kg

DRUGS (25)
  1. SEROQUEL [Suspect]
     Indication: SCHIZOAFFECTIVE DISORDER
     Route: 048
     Dates: start: 19970101
  2. NAVANE [Concomitant]
     Dates: start: 19950301
  3. RISPERDAL [Concomitant]
     Indication: HALLUCINATION
     Dates: start: 19950801
  4. RISPERDAL [Concomitant]
     Dosage: 6 TO 8 MG
     Route: 048
     Dates: start: 19960424
  5. REZULIN [Concomitant]
     Dosage: FILED LAWSUIT IN 1998 / SETTLED 2005.
  6. HUMULIN R [Concomitant]
     Indication: DIABETES MELLITUS
     Dosage: 30/70 UNITS AND 100 UNITS PER ML SOLUTION
     Dates: start: 20010502
  7. PROZAC [Concomitant]
     Indication: DEPRESSION
     Dosage: 20 TO 40 MG AT MORNING
     Route: 048
     Dates: start: 19960424
  8. TRAZODONE HCL [Concomitant]
     Indication: SLEEP DISORDER
     Dates: start: 20050101
  9. ZESTORETIC [Concomitant]
     Indication: HYPERTENSION
  10. VIOXX [Concomitant]
     Dates: start: 20010502
  11. ASPIRIN [Concomitant]
     Dates: start: 20030523
  12. NEURONTIN [Concomitant]
     Dates: start: 20051117
  13. DEPAKOTE [Concomitant]
     Dosage: 250 MG TWO IN MORNING AND 1500 MG AT NIGHT
     Route: 048
     Dates: start: 19960424
  14. AVANDIA [Concomitant]
     Route: 048
     Dates: start: 20060222
  15. ZESTRIL [Concomitant]
     Route: 048
     Dates: start: 20060215
  16. ZOCOR [Concomitant]
     Dosage: 20 MG EVERY DAY AT NIGHT
     Dates: start: 20060215
  17. DIAZEPAM [Concomitant]
     Dosage: 10 TO 15 MG
     Route: 048
     Dates: start: 20060215
  18. WELLBUTRIN XL [Concomitant]
     Route: 048
     Dates: start: 20060215
  19. LASIX [Concomitant]
     Route: 048
     Dates: start: 20060215
  20. PROCRIT [Concomitant]
     Dosage: 10000 UNIT/ML WEEKLY
     Route: 058
     Dates: start: 20060215
  21. PERCOCET [Concomitant]
     Dosage: 5/325 MG TWO TIMES A DAY AS NEEDED
     Route: 048
     Dates: start: 20040518
  22. LANTUS [Concomitant]
     Dates: start: 20060331
  23. NOVOLIN R [Concomitant]
     Dosage: 55 UNITS IN MORNING AND 35 UNITS IN EVENING
     Route: 058
     Dates: start: 20051203
  24. CYMBALTA [Concomitant]
     Dates: start: 20050507
  25. NORTRYPTIILINE [Concomitant]
     Dates: start: 20071015

REACTIONS (17)
  - ANGIOPATHY [None]
  - DIABETES MELLITUS [None]
  - DIABETES MELLITUS INADEQUATE CONTROL [None]
  - DIABETIC FOOT [None]
  - DIABETIC FOOT INFECTION [None]
  - DIABETIC GANGRENE [None]
  - DIABETIC NEUROPATHY [None]
  - DIABETIC VASCULAR DISORDER [None]
  - HYPOGLYCAEMIA [None]
  - NECROSIS [None]
  - OBESITY [None]
  - PERIPHERAL VASCULAR DISORDER [None]
  - SEPSIS [None]
  - SUICIDAL IDEATION [None]
  - SYSTEMIC INFLAMMATORY RESPONSE SYNDROME [None]
  - TRANSPOSITION OF THE GREAT VESSELS [None]
  - TYPE 1 DIABETES MELLITUS [None]
